FAERS Safety Report 9714182 (Version 2)
Quarter: 2013Q4

REPORT INFORMATION
  Report Type: Spontaneous
  Country: US (occurrence: US)
  Receive Date: 20131126
  Receipt Date: 20131126
  Transmission Date: 20140711
  Serious: No
  Sender: FDA-Public Use
  Company Number: US-GILEAD-2008-0018432

PATIENT
  Sex: Female
  Weight: 69.85 kg

DRUGS (10)
  1. LETAIRIS [Suspect]
     Indication: PULMONARY ARTERIAL HYPERTENSION
     Dates: start: 20080912
  2. NORVASC [Concomitant]
  3. DIGOXIN [Concomitant]
  4. COZAAR [Concomitant]
  5. GLYBURIDE [Concomitant]
  6. LASIX [Concomitant]
  7. OMEPRAZOLE [Concomitant]
  8. K-DUR [Concomitant]
  9. IRON [Concomitant]
  10. NIACIN [Concomitant]

REACTIONS (2)
  - Local swelling [None]
  - Weight increased [None]
